FAERS Safety Report 19490725 (Version 3)
Quarter: 2022Q3

REPORT INFORMATION
  Report Type: Spontaneous
  Country: US (occurrence: US)
  Receive Date: 20210705
  Receipt Date: 20220912
  Transmission Date: 20221027
  Serious: Yes (Other)
  Sender: FDA-Public Use
  Company Number: US-JNJFOC-20210659170

PATIENT
  Age: 6 Decade
  Sex: Female

DRUGS (8)
  1. ELMIRON [Suspect]
     Active Substance: PENTOSAN POLYSULFATE SODIUM
     Indication: Cystitis interstitial
     Dosage: 3-5 OR MORE TIMES A DAY, PRECISE DOSAGE UNKNOWN
     Route: 048
     Dates: start: 2015, end: 2020
  2. NORCO [Concomitant]
     Active Substance: ACETAMINOPHEN\HYDROCODONE BITARTRATE
     Indication: Cystitis interstitial
     Route: 065
     Dates: start: 2016
  3. IMITREX [Concomitant]
     Active Substance: SUMATRIPTAN SUCCINATE
     Indication: Migraine
     Route: 065
     Dates: start: 1990
  4. MAXZIDE [Concomitant]
     Active Substance: HYDROCHLOROTHIAZIDE\TRIAMTERENE
     Indication: Fluid retention
     Route: 065
     Dates: start: 1990
  5. EFFEXOR [Concomitant]
     Active Substance: VENLAFAXINE HYDROCHLORIDE
     Indication: Depression
     Route: 065
     Dates: start: 2010
  6. EFFEXOR [Concomitant]
     Active Substance: VENLAFAXINE HYDROCHLORIDE
     Indication: Anxiety
  7. KLONOPIN [Concomitant]
     Active Substance: CLONAZEPAM
     Indication: Depression
     Route: 065
     Dates: start: 1998, end: 2018
  8. KLONOPIN [Concomitant]
     Active Substance: CLONAZEPAM
     Indication: Anxiety

REACTIONS (1)
  - Macular degeneration [Not Recovered/Not Resolved]

NARRATIVE: CASE EVENT DATE: 20150101
